FAERS Safety Report 6526560-2 (Version None)
Quarter: 2010Q1

REPORT INFORMATION
  Report Type: 
  Country: None (occurrence: None)
  Receive Date: 20100105
  Receipt Date: 20091221
  Transmission Date: 20100710
  Serious: Yes (Hospitalization, Other)
  Sender: FDA-Public Use
  Company Number: PHHY2009JP59161

PATIENT
  Sex: Female

DRUGS (4)
  1. STI571/CGP57148B T35717+CAPS [Suspect]
     Indication: GASTROINTESTINAL STROMAL TUMOUR
     Dosage: 400 MG/DAY
     Route: 048
     Dates: start: 20031206, end: 20050509
  2. STI571/CGP57148B T35717+CAPS [Suspect]
     Dosage: 400 MG/DAY
     Route: 048
     Dates: start: 20050525, end: 20070419
  3. STI571/CGP57148B T35717+CAPS [Suspect]
     Dosage: 400 MG/DAY
     Route: 048
     Dates: start: 20070503, end: 20070613
  4. STI571/CGP57148B T35717+CAPS [Suspect]
     Dosage: 300 MG/DAY
     Route: 048
     Dates: start: 20070614, end: 20071226

REACTIONS (7)
  - CALCULUS URETERIC [None]
  - FACE OEDEMA [None]
  - OEDEMA PERIPHERAL [None]
  - PAIN [None]
  - PYELONEPHRITIS [None]
  - PYREXIA [None]
  - RENAL FAILURE ACUTE [None]
